FAERS Safety Report 13893742 (Version 1)
Quarter: 2017Q3

REPORT INFORMATION
  Report Type: Spontaneous
  Country: US (occurrence: US)
  Receive Date: 20170822
  Receipt Date: 20170822
  Transmission Date: 20171127
  Serious: Yes (Other)
  Sender: FDA-Public Use
  Company Number: PHHY2017US122747

PATIENT
  Sex: Female

DRUGS (4)
  1. HYDROXYCHLOROQUINE [Concomitant]
     Active Substance: HYDROXYCHLOROQUINE
     Indication: PORPHYRIA NON-ACUTE
     Route: 065
  2. HYDROXYCHLOROQUINE [Concomitant]
     Active Substance: HYDROXYCHLOROQUINE
     Indication: DISEASE RECURRENCE
  3. RIBAVIRIN. [Suspect]
     Active Substance: RIBAVIRIN
     Indication: HEPATITIS C VIRUS TEST POSITIVE
     Dosage: UNK
     Route: 065
  4. RIBAVIRIN. [Interacting]
     Active Substance: RIBAVIRIN
     Dosage: UNK
     Route: 065

REACTIONS (4)
  - Porphyria non-acute [Recovered/Resolved]
  - Disease recurrence [Unknown]
  - Drug interaction [Unknown]
  - Blister [Unknown]
